FAERS Safety Report 5363988-0 (Version None)
Quarter: 2007Q2

REPORT INFORMATION
  Report Type: 
  Country: None (occurrence: None)
  Receive Date: 20070620
  Receipt Date: 20070611
  Transmission Date: 20071010
  Serious: Yes (Death)
  Sender: FDA-Public Use
  Company Number: TR-SANOFI-SYNTHELABO-A04200700074

PATIENT
  Age: 44 Year
  Sex: Female

DRUGS (3)
  1. QUENSYL [Suspect]
     Indication: COLLAGEN DISORDER
     Dosage: 100 MG DAILY IRREGULARLY
     Route: 048
     Dates: start: 20050823, end: 20060630
  2. IMURAN [Concomitant]
     Indication: DRUG USE FOR UNKNOWN INDICATION
     Dosage: UNK
     Route: 048
  3. DELTACORTRIL [Concomitant]
     Indication: DRUG USE FOR UNKNOWN INDICATION
     Dosage: UNK
     Route: 065

REACTIONS (4)
  - ARRHYTHMIA [None]
  - CARDIAC FAILURE [None]
  - CONGESTIVE CARDIOMYOPATHY [None]
  - LEFT VENTRICULAR DYSFUNCTION [None]
